FAERS Safety Report 7495275-9 (Version None)
Quarter: 2011Q2

REPORT INFORMATION
  Report Type: 
  Country: None (occurrence: None)
  Receive Date: 20110523
  Receipt Date: 20110516
  Transmission Date: 20111010
  Serious: Yes (Other)
  Sender: FDA-Public Use
  Company Number: US-BRISTOL-MYERS SQUIBB COMPANY-15554181

PATIENT
  Age: 57 Year
  Sex: Female

DRUGS (4)
  1. MESNA [Suspect]
     Dates: start: 20110118
  2. ALOXI [Suspect]
     Dates: start: 20110119
  3. EMEND [Suspect]
     Dates: start: 20110214
  4. IFEX [Suspect]
     Indication: OVARIAN CANCER
     Dosage: 1 DF=1 GRAM PER METER SQUARED,3RD LINE, 2ND CYCLE, DAY 3 OF THERAPY
     Route: 042
     Dates: start: 20110117

REACTIONS (3)
  - VERTIGO [None]
  - HALLUCINATION, VISUAL [None]
  - FATIGUE [None]
